FAERS Safety Report 5058461-3 (Version None)
Quarter: 2006Q3

REPORT INFORMATION
  Report Type: 
  Country: None (occurrence: None)
  Receive Date: 20060721
  Receipt Date: 20060710
  Transmission Date: 20061208
  Serious: Yes (Hospitalization)
  Sender: FDA-Public Use
  Company Number: CA-JNJFOC-20060701660

PATIENT
  Sex: Male

DRUGS (3)
  1. REMICADE [Suspect]
     Dosage: INFUSION # 12
     Route: 042
  2. REMICADE [Suspect]
     Dosage: INFUSION # 11
     Route: 042
  3. REMICADE [Suspect]
     Indication: DRUG USE FOR UNKNOWN INDICATION
     Dosage: TEN INFUSIONS ON UNSPECIFIED DATES
     Route: 042

REACTIONS (1)
  - DIARRHOEA HAEMORRHAGIC [None]
